FAERS Safety Report 7407616-9 (Version None)
Quarter: 2011Q2

REPORT INFORMATION
  Report Type: 
  Country: None (occurrence: None)
  Receive Date: 20110405
  Receipt Date: 20110324
  Transmission Date: 20111010
  Serious: Yes (Disabling, Other)
  Sender: FDA-Public Use
  Company Number: WAES 1006USA03048

PATIENT
  Age: 82 Year
  Sex: Female

DRUGS (10)
  1. FOLIC ACID [Concomitant]
  2. LORAZEPAM [Concomitant]
  3. ZOCOR [Suspect]
     Indication: ACUTE CORONARY SYNDROME
     Dosage: 40 MG/DAILY PO
     Route: 048
     Dates: start: 20081106
  4. TRAZODONE HCL [Concomitant]
  5. METOPROLOL [Concomitant]
  6. CITALOPRAM [Concomitant]
  7. RAMIPRIL [Concomitant]
  8. PLACEBO [Suspect]
     Indication: ACUTE CORONARY SYNDROME
     Dosage: PO
     Route: 048
     Dates: start: 20081106
  9. ASPIRIN [Concomitant]
  10. LEVOTHYROXINE SODIUM [Concomitant]

REACTIONS (9)
  - SPINAL COMPRESSION FRACTURE [None]
  - BLOOD SODIUM DECREASED [None]
  - DYSPHAGIA [None]
  - CONDITION AGGRAVATED [None]
  - POLYMYOSITIS [None]
  - OSTEOARTHRITIS [None]
  - DECREASED APPETITE [None]
  - APHASIA [None]
  - HAEMOGLOBIN DECREASED [None]
